FAERS Safety Report 5012828-8 (Version None)
Quarter: 2006Q2

REPORT INFORMATION
  Report Type: 
  Country: None (occurrence: None)
  Receive Date: 20060530
  Receipt Date: 20060406
  Transmission Date: 20061013
  Serious: No
  Sender: FDA-Public Use
  Company Number: US-BRISTOL-MYERS SQUIBB COMPANY-13339569

PATIENT
  Sex: Male

DRUGS (2)
  1. ERBITUX [Suspect]
     Indication: NEOPLASM MALIGNANT
     Route: 042
     Dates: start: 20060404, end: 20060404
  2. BENADRYL [Concomitant]
     Indication: PREMEDICATION
     Dates: start: 20060404, end: 20060404

REACTIONS (1)
  - INFUSION RELATED REACTION [None]
